FAERS Safety Report 10470678 (Version 2)
Quarter: 2014Q3

REPORT INFORMATION
  Report Type: Spontaneous
  Country: US (occurrence: US)
  Receive Date: 20140923
  Receipt Date: 20140923
  Transmission Date: 20150326
  Serious: Yes (Hospitalization)
  Sender: FDA-Public Use
  Company Number: US-GLAXOSMITHKLINE-A0864131A

PATIENT
  Sex: Female
  Weight: 100 kg

DRUGS (1)
  1. AVANDIA [Suspect]
     Active Substance: ROSIGLITAZONE MALEATE
     Indication: DIABETES MELLITUS
     Route: 048
     Dates: start: 200401, end: 200502

REACTIONS (4)
  - Coronary artery disease [Unknown]
  - Cardiac valve disease [Recovering/Resolving]
  - Cardiac disorder [Unknown]
  - Arterial disorder [Unknown]
